FAERS Safety Report 8427056-3 (Version None)
Quarter: 2012Q2

REPORT INFORMATION
  Report Type: 
  Country: None (occurrence: None)
  Receive Date: 20120611
  Receipt Date: 20120605
  Transmission Date: 20120825
  Serious: Yes (Hospitalization)
  Sender: FDA-Public Use
  Company Number: UY-ROCHE-1076136

PATIENT
  Age: 65 Year
  Sex: Female
  Weight: 57 kg

DRUGS (10)
  1. CLONAZEPAM [Concomitant]
  2. DOCETAXEL [Concomitant]
     Dates: start: 20111123, end: 20120229
  3. ENALAPRIL MALEATE [Concomitant]
     Route: 048
  4. DIGOXIN [Concomitant]
  5. CARVEDILOL [Concomitant]
  6. HERCEPTIN [Suspect]
     Indication: BREAST CANCER METASTATIC
     Route: 042
     Dates: start: 20111220, end: 20120228
  7. ATORVASTATIN CALCIUM [Concomitant]
     Route: 048
  8. ESPIRONOLACTONA [Concomitant]
  9. METFORMIN HCL [Concomitant]
     Indication: DIABETES MELLITUS
     Route: 048
  10. FUROSEMIDE [Concomitant]

REACTIONS (1)
  - FORCED EXPIRATORY VOLUME DECREASED [None]
